FAERS Safety Report 25084743 (Version 2)
Quarter: 2025Q1

REPORT INFORMATION
  Report Type: Spontaneous
  Country: ES (occurrence: ES)
  Receive Date: 20250317
  Receipt Date: 20250321
  Transmission Date: 20250409
  Serious: Yes (Hospitalization)
  Sender: MERCK SHARP & DOHME LLC
  Company Number: None

PATIENT
  Age: 51 Year
  Sex: Male

DRUGS (5)
  1. KEYTRUDA [Suspect]
     Active Substance: PEMBROLIZUMAB
     Indication: Lung neoplasm malignant
     Route: 042
     Dates: start: 20230127
  2. PEMETREXED [Concomitant]
     Active Substance: PEMETREXED
     Indication: Lung neoplasm malignant
     Route: 042
     Dates: start: 20230127
  3. SIMVASTATIN KERN PHARMA 10 mg FILM-COATED TABLETS EFG, 28 tablets [Concomitant]
     Route: 048
     Dates: start: 20230313
  4. OPTOVITE B12 1,000 MICROGRAMS SOLUTION FOR INJECTION, 5 ampoules of... [Concomitant]
     Route: 030
     Dates: start: 20230127
  5. ZOLICO 400 MICROGRAMS TABLETS, 28 tablets [Concomitant]
     Route: 048
     Dates: start: 20230127

REACTIONS (2)
  - Epididymitis [Recovered/Resolved]
  - Orchitis [Recovered/Resolved]

NARRATIVE: CASE EVENT DATE: 20241206
